FAERS Safety Report 6873109-0 (Version None)
Quarter: 2010Q3

REPORT INFORMATION
  Report Type: 
  Country: None (occurrence: None)
  Receive Date: 20100723
  Receipt Date: 20090408
  Transmission Date: 20110219
  Serious: Yes (Other)
  Sender: FDA-Public Use
  Company Number: US-PFIZER INC-2008090901

PATIENT
  Sex: Female
  Weight: 61.363 kg

DRUGS (7)
  1. CHANTIX [Suspect]
     Dates: start: 20080101, end: 20080101
  2. CYMBALTA [Concomitant]
  3. SYNTHROID [Concomitant]
  4. METFORMIN HCL [Concomitant]
  5. MICARDIS [Concomitant]
  6. PRAVASTATIN [Concomitant]
  7. NOVOLOG [Concomitant]

REACTIONS (3)
  - ABNORMAL DREAMS [None]
  - HALLUCINATION [None]
  - SLEEP TALKING [None]
